FAERS Safety Report 7832777 (Version 3)
Quarter: 2017Q1

REPORT INFORMATION
  Report Type: Spontaneous
  Country: JP (occurrence: JP)
  Receive Date: 20110228
  Receipt Date: 20170126
  Transmission Date: 20170429
  Serious: Yes (Life-Threatening, Other)
  Sender: FDA-Public Use
  Company Number: JP-ASTRAZENECA-2011SE09977

PATIENT
  Age: 58 Year
  Sex: Female

DRUGS (3)
  1. LOXONIN [Suspect]
     Active Substance: LOXOPROFEN SODIUM
     Dosage: DOSE UNKNOWN
     Route: 048
  2. LISITRIL [Suspect]
     Active Substance: LISINOPRIL
     Dosage: ABOUT 60 TABLETS, NON-AZ PRODUCT
     Route: 048
  3. NIFEDIPINE CR [Suspect]
     Active Substance: NIFEDIPINE
     Dosage: ABOUT 120 TABLETS
     Route: 048

REACTIONS (8)
  - Intentional overdose [Recovered/Resolved]
  - Coma [Recovered/Resolved]
  - Vomiting [Recovered/Resolved]
  - Hyperglycaemia [Unknown]
  - Suicide attempt [Recovered/Resolved]
  - Pulseless electrical activity [Recovered/Resolved]
  - Cardio-respiratory arrest [Recovered/Resolved]
  - Nausea [Recovered/Resolved]
